FAERS Safety Report 8338727-1 (Version None)
Quarter: 2012Q2

REPORT INFORMATION
  Report Type: 
  Country: None (occurrence: None)
  Receive Date: 20120504
  Receipt Date: 20120419
  Transmission Date: 20120825
  Serious: Yes (Other)
  Sender: FDA-Public Use
  Company Number: CHPA2012US009761

PATIENT
  Sex: Female

DRUGS (1)
  1. EXCEDRIN (MIGRAINE) [Suspect]
     Indication: MIGRAINE
     Dosage: 2 DF EVERY SO MANY HOURS, PRN
     Route: 048
     Dates: start: 20020101

REACTIONS (3)
  - OVERDOSE [None]
  - HEAD INJURY [None]
  - ROAD TRAFFIC ACCIDENT [None]
